FAERS Safety Report 25015187 (Version 2)
Quarter: 2025Q1

REPORT INFORMATION
  Report Type: Spontaneous
  Country: CH (occurrence: CH)
  Receive Date: 20250226
  Receipt Date: 20250311
  Transmission Date: 20250408
  Serious: Yes (Other)
  Sender: ABBVIE
  Company Number: CH-ABBVIE-6149939

PATIENT
  Age: 23 Year
  Sex: Female
  Weight: 92 kg

DRUGS (2)
  1. RINVOQ [Suspect]
     Active Substance: UPADACITINIB
     Indication: Colitis ulcerative
     Route: 048
     Dates: start: 20230503
  2. Salofalk [Concomitant]
     Indication: Colitis ulcerative
     Dosage: 2 GRAM
     Route: 054
     Dates: start: 20230309

REACTIONS (1)
  - Venous thrombosis limb [Recovered/Resolved]

NARRATIVE: CASE EVENT DATE: 20230704
